FAERS Safety Report 9297387 (Version 1)
Quarter: 2013Q2

REPORT INFORMATION
  Report Type: Spontaneous
  Country: US (occurrence: US)
  Receive Date: 20130520
  Receipt Date: 20130520
  Transmission Date: 20140414
  Serious: No
  Sender: FDA-Public Use
  Company Number: US-BIOGENIDEC-2013BI044617

PATIENT
  Sex: Female

DRUGS (3)
  1. TYSABRI [Suspect]
     Indication: MULTIPLE SCLEROSIS
     Route: 042
     Dates: start: 20130122
  2. PROVIGIL [Concomitant]
  3. PROZAC [Concomitant]

REACTIONS (11)
  - Balance disorder [Unknown]
  - Myokymia [Unknown]
  - Hypoaesthesia [Unknown]
  - Dysarthria [Unknown]
  - Decreased appetite [Recovered/Resolved]
  - Somnolence [Recovered/Resolved]
  - Cognitive disorder [Unknown]
  - Neuropathy peripheral [Unknown]
  - Depression [Not Recovered/Not Resolved]
  - Memory impairment [Unknown]
  - Fatigue [Recovered/Resolved]
